FAERS Safety Report 17469640 (Version 2)
Quarter: 2020Q1

REPORT INFORMATION
  Report Type: Report from Study
  Country: NL (occurrence: NL)
  Receive Date: 20200227
  Receipt Date: 20200302
  Transmission Date: 20200409
  Serious: Yes (Hospitalization)
  Sender: FDA-Public Use
  Company Number: NL-PFIZER INC-2020072560

PATIENT
  Age: 27 Year
  Sex: Female

DRUGS (1)
  1. CRIZOTINIB [Suspect]
     Active Substance: CRIZOTINIB
     Indication: INFLAMMATORY MYOFIBROBLASTIC TUMOUR
     Dosage: 250 MG, 2X/DAY
     Route: 048
     Dates: start: 20191224, end: 20200214

REACTIONS (1)
  - Influenza [Recovered/Resolved]

NARRATIVE: CASE EVENT DATE: 20200215
